FAERS Safety Report 9208977 (Version 3)
Quarter: 2013Q3

REPORT INFORMATION
  Report Type: Report from Study
  Country: BE (occurrence: BE)
  Receive Date: 20130404
  Receipt Date: 20130724
  Transmission Date: 20140515
  Serious: Yes (Other)
  Sender: FDA-Public Use
  Company Number: BE-GENZYME-CLOF-1002575

PATIENT
  Age: 49 Year
  Sex: Male
  Weight: 79 kg

DRUGS (3)
  1. EVOLTRA [Suspect]
     Indication: ACUTE MYELOID LEUKAEMIA
     Dosage: 19.75 MG, QD FOR 05 DAYS.
     Route: 042
     Dates: start: 20111217
  2. IDARUBICIN [Suspect]
     Indication: ACUTE MYELOID LEUKAEMIA
     Dosage: 23.7 MG, UNK
     Route: 042
     Dates: start: 20111217
  3. CYTARABINE [Suspect]
     Indication: ACUTE MYELOID LEUKAEMIA
     Dosage: 395.01 MG, UNK
     Route: 042
     Dates: start: 20111217

REACTIONS (3)
  - Lung infiltration [Recovered/Resolved]
  - Hypoxia [Recovered/Resolved]
  - Hepatic function abnormal [Recovered/Resolved]
